FAERS Safety Report 5415507-8 (Version None)
Quarter: 2007Q3

REPORT INFORMATION
  Report Type: 
  Country: None (occurrence: None)
  Receive Date: 20070813
  Receipt Date: 20070806
  Transmission Date: 20080115
  Serious: Yes (Death, Life-Threatening)
  Sender: FDA-Public Use
  Company Number: 200708AGG00690

PATIENT
  Age: 60 Year
  Sex: Female

DRUGS (2)
  1. AGGRASTAT [Suspect]
     Dosage: INTRAVENOUS (NOT OTHERWISE SPECIFIED)
     Dates: start: 20070528, end: 20070528
  2. ASPIRIN [Concomitant]

REACTIONS (1)
  - CARDIOGENIC SHOCK [None]
